FAERS Safety Report 20767926 (Version 2)
Quarter: 2022Q2

REPORT INFORMATION
  Report Type: Spontaneous
  Country: US (occurrence: US)
  Receive Date: 20220429
  Receipt Date: 20220523
  Transmission Date: 20220721
  Serious: Yes (Other)
  Sender: FDA-Public Use
  Company Number: US-Vifor (International) Inc.-VIT-2022-02862

PATIENT
  Age: 66 Year
  Sex: Male
  Weight: 89.2 kg

DRUGS (3)
  1. MIRCERA [Suspect]
     Active Substance: METHOXY POLYETHYLENE GLYCOL-EPOETIN BETA
     Indication: Nephrogenic anaemia
     Route: 042
     Dates: start: 20220401, end: 20220401
  2. VENOFER [Concomitant]
     Active Substance: IRON SUCROSE
     Dosage: EVERY TX TIMES 10
     Route: 042
     Dates: start: 20220316, end: 20220406
  3. CALCITRIOL [Concomitant]
     Active Substance: CALCITRIOL
     Dosage: EVERY HD TX
     Route: 048
     Dates: start: 20220316, end: 20220408

REACTIONS (5)
  - Drug hypersensitivity [Recovered/Resolved]
  - Chest pain [Recovered/Resolved]
  - Back pain [Recovered/Resolved]
  - Heart rate increased [Recovered/Resolved]
  - Muscle spasms [Recovered/Resolved]

NARRATIVE: CASE EVENT DATE: 20220401
